FAERS Safety Report 8544848-0 (Version None)
Quarter: 2012Q3

REPORT INFORMATION
  Report Type: 
  Country: None (occurrence: None)
  Receive Date: 20120727
  Receipt Date: 20120718
  Transmission Date: 20120928
  Serious: Yes (Life-Threatening, Hospitalization)
  Sender: FDA-Public Use
  Company Number: DE-ROCHE-1091098

PATIENT
  Sex: Male
  Weight: 62.2 kg

DRUGS (11)
  1. ASPIRIN [Concomitant]
     Dates: start: 20110525
  2. BISOPROLOL FUMARATE [Concomitant]
     Dates: start: 20111014
  3. MIRCERA [Suspect]
     Indication: PRODUCT USED FOR UNKNOWN INDICATION
     Route: 042
     Dates: start: 20111228
  4. RAMIPRIL [Concomitant]
     Dates: start: 20100205
  5. TORSEMIDE [Concomitant]
     Dates: start: 20110704
  6. OMEPRAZOLE [Concomitant]
     Dates: start: 20080721
  7. GABAPENTIN [Concomitant]
     Dates: start: 20100603
  8. AMLODIPINE [Concomitant]
     Dates: start: 20111010
  9. AMITRIPTYLINE HYDROCHLORIDE [Concomitant]
     Dates: start: 20101206
  10. PRAVASTATIN [Concomitant]
     Dates: start: 20080401
  11. CHOLECALCIFEROL [Concomitant]
     Dates: start: 20080811

REACTIONS (2)
  - PERICARDIAL EFFUSION [None]
  - VIRAL MYOCARDITIS [None]
